FAERS Safety Report 9874385 (Version 4)
Quarter: 2014Q1

REPORT INFORMATION
  Report Type: Spontaneous
  Country: JP (occurrence: JP)
  Receive Date: 20140206
  Receipt Date: 20140226
  Transmission Date: 20141002
  Serious: Yes (Death, Hospitalization)
  Sender: FDA-Public Use
  Company Number: JP-ROCHE-1337277

PATIENT
  Age: 66 Year
  Sex: Female
  Weight: 59 kg

DRUGS (14)
  1. PERJETA [Suspect]
     Indication: BREAST CANCER
     Dosage: 420 MG/14 ML?DOSAGE IS UNCERTAIN.
     Route: 041
     Dates: start: 20131129, end: 20131129
  2. PERJETA [Suspect]
     Indication: BREAST CANCER
     Dosage: DOSAGE IS UNCERTAIN.
     Route: 041
     Dates: start: 20131220, end: 20131220
  3. PERJETA [Suspect]
     Indication: BREAST CANCER
     Dosage: DOSAGE IS UNCERTAIN.
     Route: 041
     Dates: start: 20140110, end: 20140110
  4. HERCEPTIN [Suspect]
     Indication: BREAST CANCER
     Route: 041
     Dates: start: 20130222, end: 20131112
  5. HERCEPTIN [Suspect]
     Indication: BREAST CANCER
     Route: 041
     Dates: start: 20131129, end: 20140110
  6. DOCETAXEL [Suspect]
     Indication: BREAST CANCER
     Dosage: DOSAGE IS UNCERTAIN.
     Route: 041
     Dates: start: 20131129, end: 20140110
  7. HALAVEN [Concomitant]
     Indication: BREAST CANCER
     Route: 042
     Dates: start: 20130222, end: 20131112
  8. ALFAROL [Concomitant]
     Indication: BREAST CANCER
     Route: 048
  9. TAKEPRON [Concomitant]
     Indication: BREAST CANCER
     Route: 065
  10. FERROMIA [Concomitant]
     Indication: BREAST CANCER
     Route: 048
  11. CALCIUM LACTATE [Concomitant]
     Indication: BREAST CANCER
     Route: 048
  12. DOGMATYL [Concomitant]
     Indication: BREAST CANCER
     Route: 065
  13. PLETAAL [Concomitant]
     Indication: BREAST CANCER
     Route: 048
  14. OXYCONTIN [Concomitant]
     Indication: BREAST CANCER
     Route: 048

REACTIONS (3)
  - Febrile neutropenia [Fatal]
  - Septic shock [Fatal]
  - Influenza A virus test positive [Unknown]
